FAERS Safety Report 10606906 (Version 1)
Quarter: 2014Q4

REPORT INFORMATION
  Report Type: Spontaneous
  Country: IT (occurrence: IT)
  Receive Date: 20141125
  Receipt Date: 20141125
  Transmission Date: 20150529
  Serious: Yes (Hospitalization)
  Sender: FDA-Public Use
  Company Number: PHHY2014IT150095

PATIENT
  Sex: Female

DRUGS (7)
  1. MICARDIS PLUS [Concomitant]
     Active Substance: HYDROCHLOROTHIAZIDE\TELMISARTAN
     Dosage: UNK
     Route: 048
  2. LASIX [Concomitant]
     Active Substance: FUROSEMIDE
     Dosage: 25 MG, UNK
  3. DIBASE [Concomitant]
     Active Substance: CHOLECALCIFEROL
     Dosage: 10000 U/ML, UNK
  4. CATAPRESSAN TTS [Concomitant]
     Active Substance: CLONIDINE
     Dosage: 2.5 MG, UNK
  5. SINVACOR [Concomitant]
     Active Substance: SIMVASTATIN
     Dosage: 10 MG, UNK
  6. AMIODARONE [Suspect]
     Active Substance: AMIODARONE
     Dosage: 1 DF, QD
     Route: 048
     Dates: start: 20131201, end: 20140208
  7. PROTEGRA [Concomitant]
     Dosage: UNK

REACTIONS (2)
  - Syncope [Recovered/Resolved]
  - Electrocardiogram QT prolonged [Recovered/Resolved]

NARRATIVE: CASE EVENT DATE: 20140208
